FAERS Safety Report 6184635-4 (Version None)
Quarter: 2009Q2

REPORT INFORMATION
  Report Type: 
  Country: None (occurrence: None)
  Receive Date: 20090508
  Receipt Date: 20090427
  Transmission Date: 20091009
  Serious: Yes (Other)
  Sender: FDA-Public Use
  Company Number: US-PFIZER INC-2007075206

PATIENT
  Sex: Female
  Weight: 56.699 kg

DRUGS (7)
  1. CHANTIX [Suspect]
     Indication: SMOKING CESSATION THERAPY
     Dosage: 1 MG, 2X/DAY
     Route: 048
     Dates: start: 20071101
  2. OXYCODONE HYDROCHLORIDE W/PARACETAMOL [Concomitant]
  3. CITALOPRAM HYDROBROMIDE [Concomitant]
  4. EFFEXOR [Concomitant]
  5. NEURONTIN [Concomitant]
  6. CYMBALTA [Concomitant]
  7. OXYCODONE HCL [Concomitant]
     Dosage: UNK

REACTIONS (10)
  - CONFUSIONAL STATE [None]
  - EMOTIONAL DISTRESS [None]
  - FATIGUE [None]
  - INCORRECT DOSE ADMINISTERED [None]
  - MALAISE [None]
  - MEDICATION ERROR [None]
  - MEMORY IMPAIRMENT [None]
  - MOBILITY DECREASED [None]
  - SOMNOLENCE [None]
  - WITHDRAWAL SYNDROME [None]
